FAERS Safety Report 16280043 (Version 1)
Quarter: 2019Q2

REPORT INFORMATION
  Report Type: Spontaneous
  Country: US (occurrence: US)
  Receive Date: 20190507
  Receipt Date: 20190507
  Transmission Date: 20190711
  Serious: Yes (Other)
  Sender: FDA-Public Use
  Company Number: US-CIPLA LTD.-2019US02953

PATIENT

DRUGS (3)
  1. ESCITALOPRAM [Suspect]
     Active Substance: ESCITALOPRAM OXALATE
     Indication: DEPRESSION
     Dosage: 10 MILLIGRAM, UNK
     Route: 048
     Dates: start: 20190402, end: 20190425
  2. ESCITALOPRAM [Suspect]
     Active Substance: ESCITALOPRAM OXALATE
     Indication: SOCIAL ANXIETY DISORDER
  3. IBGARD [Concomitant]
     Indication: IRRITABLE BOWEL SYNDROME
     Dosage: UNK, TID (3 TIMES A DAY BEFORE MEALS)
     Route: 065

REACTIONS (5)
  - Confusional state [Unknown]
  - Seizure [Unknown]
  - Fall [Unknown]
  - Loss of consciousness [Unknown]
  - Gait disturbance [Unknown]

NARRATIVE: CASE EVENT DATE: 20190425
